FAERS Safety Report 6871012-3 (Version None)
Quarter: 2010Q3

REPORT INFORMATION
  Report Type: 
  Country: None (occurrence: None)
  Receive Date: 20100723
  Receipt Date: 20100714
  Transmission Date: 20110219
  Serious: Yes (Life-Threatening, Hospitalization)
  Sender: FDA-Public Use
  Company Number: ZA-JNJFOC-20100705150

PATIENT
  Sex: Male

DRUGS (2)
  1. REVELLEX [Suspect]
     Indication: PSORIATIC ARTHROPATHY
     Route: 042
  2. REVELLEX [Suspect]
     Route: 042

REACTIONS (4)
  - MYOCARDIAL INFARCTION [None]
  - PLEURAL EFFUSION [None]
  - REFLUX GASTRITIS [None]
  - SPLENOMEGALY [None]
